FAERS Safety Report 6530079-2 (Version None)
Quarter: 2010Q1

REPORT INFORMATION
  Report Type: 
  Country: None (occurrence: None)
  Receive Date: 20100104
  Receipt Date: 20091211
  Transmission Date: 20100710
  Serious: Yes (Death, Hospitalization)
  Sender: FDA-Public Use
  Company Number: THYM-1001177

PATIENT
  Age: 64 Year
  Sex: Male

DRUGS (42)
  1. THYMOGLOBULIN [Suspect]
     Indication: BONE MARROW TRANSPLANT
     Dosage: 1.5 MG/KG, QD, INTRAVENOUS ; 1.5 MG/KG, QD, INTRAVENOUS
     Route: 042
     Dates: start: 20090805, end: 20090805
  2. THYMOGLOBULIN [Suspect]
     Indication: BONE MARROW TRANSPLANT
     Dosage: 1.5 MG/KG, QD, INTRAVENOUS ; 1.5 MG/KG, QD, INTRAVENOUS
     Route: 042
     Dates: start: 20090806, end: 20090806
  3. THYMOGLOBULIN [Suspect]
     Dosage: 1.5 MG/KG, QD, INTRAVENOUS
     Route: 042
     Dates: start: 20090804, end: 20090804
  4. THYMOGLOBULIN [Suspect]
     Dosage: 1.5 MG/KG, QD, INTRAVENOUS
     Route: 042
     Dates: start: 20090803, end: 20090803
  5. THYMOGLOBULIN [Suspect]
     Dosage: 1.5 MG/KG, QD, INTRAVENOUS
     Route: 042
     Dates: start: 20090807, end: 20090807
  6. CLOFARABINE (CLOFARABINE) [Concomitant]
  7. ACETAMINOPHEN [Concomitant]
  8. DIPHENHYDRAMINE HCL [Concomitant]
  9. MEPERIDINE HCL [Concomitant]
  10. ALUMINUM HYDROXIDE SUSPENSION [Concomitant]
  11. LOPERAMIDE (LOPERAMIDE) [Concomitant]
  12. MULTIVITAMIN [Concomitant]
  13. FOLIC ACID [Concomitant]
  14. ONDANSETRON [Concomitant]
  15. ACYCLOVIR [Concomitant]
  16. FLUCONAZOLE [Concomitant]
  17. HYDROCERIN (PARAFFIN, LIQUID, WOOL ALCOHOLS) [Concomitant]
  18. FILGRASTIM (FILGRASTIM) [Concomitant]
  19. CAPHOSOL [Concomitant]
  20. MYCOPHENOLATE MOFETIL [Concomitant]
  21. LORAZEPAM [Concomitant]
  22. SENNA (SENNA ALEXANDRINA) [Concomitant]
  23. LEVOTHYROXINE SODIUM [Concomitant]
  24. TIMOLOL MALEATE [Concomitant]
  25. LIDOCAINE VISCOUS (LIDOCAINE VISCOUS) [Concomitant]
  26. OXYCODONE HCL [Concomitant]
  27. GABAPENTIN [Concomitant]
  28. CEFEPIME [Concomitant]
  29. CYCLOSPORINE [Concomitant]
  30. DOCUSATE SODIUM (DOCUSATE SODIUM) [Concomitant]
  31. LIDOCAINE [Concomitant]
  32. VANCOMYCIN [Concomitant]
  33. OXYMETAZOLINE (OXYMETAZOLINE) [Concomitant]
  34. TRIMETHOPRIM + SULFAMETHOXAZOLE [Concomitant]
  35. LEVOFLOXACIN [Concomitant]
  36. CARVEDILOL [Concomitant]
  37. CITALOPRAM HYDROBROMIDE [Concomitant]
  38. MICAFUNGIN (MICAFUNGIN) [Concomitant]
  39. PREDNISONE [Concomitant]
  40. URSODIOL [Concomitant]
  41. VALGANCICLOVIR HCL [Concomitant]
  42. VALSARTAN [Concomitant]

REACTIONS (11)
  - ACUTE GRAFT VERSUS HOST DISEASE IN SKIN [None]
  - ASTHENIA [None]
  - BLOOD CREATININE INCREASED [None]
  - CYTOMEGALOVIRUS VIRAEMIA [None]
  - HYPOTENSION [None]
  - MALIGNANT NEOPLASM PROGRESSION [None]
  - MENTAL STATUS CHANGES [None]
  - MULTIPLE MYELOMA [None]
  - PLASMACYTOMA [None]
  - PNEUMONIA [None]
  - TREMOR [None]
